FAERS Safety Report 19311002 (Version 1)
Quarter: 2021Q2

REPORT INFORMATION
  Report Type: Spontaneous
  Country: US (occurrence: US)
  Receive Date: 20210526
  Receipt Date: 20210526
  Transmission Date: 20210717
  Serious: Yes (Other)
  Sender: FDA-Public Use
  Company Number: US-009507513-2105USA004314

PATIENT
  Age: 50 Year
  Sex: Male

DRUGS (1)
  1. INTEGRILIN [Suspect]
     Active Substance: EPTIFIBATIDE
     Indication: PERCUTANEOUS CORONARY INTERVENTION

REACTIONS (1)
  - Thrombocytopenia [Unknown]
